FAERS Safety Report 7610412-0 (Version None)
Quarter: 2011Q3

REPORT INFORMATION
  Report Type: 
  Country: None (occurrence: None)
  Receive Date: 20110715
  Receipt Date: 20110708
  Transmission Date: 20111222
  Serious: No
  Sender: FDA-Public Use
  Company Number: US-PFIZER INC-2011155702

PATIENT
  Sex: Male
  Weight: 77.098 kg

DRUGS (11)
  1. NEXIUM [Concomitant]
     Dosage: UNK
  2. CELEBREX [Concomitant]
     Dosage: UNK
  3. SUTENT [Suspect]
     Indication: BRAIN NEOPLASM MALIGNANT
     Dosage: 50 MG, 1X/DAY, 4 WEEKS ON 2 WEEKS OFF
     Route: 048
  4. RITALIN [Concomitant]
     Dosage: UNK
  5. NEURONTIN [Concomitant]
     Dosage: UNK
  6. MORPHINE SULFATE [Concomitant]
     Dosage: UNK
  7. OXYCONTIN [Concomitant]
     Dosage: UNK
  8. DILAUDID [Concomitant]
     Dosage: UNK
  9. OXYCODONE [Concomitant]
     Dosage: UNK
  10. DEXAMETHASONE [Concomitant]
     Dosage: UNK
  11. CALCIUM [Concomitant]
     Dosage: UNK

REACTIONS (1)
  - SKIN EXFOLIATION [None]
